FAERS Safety Report 7011066-7 (Version None)
Quarter: 2010Q3

REPORT INFORMATION
  Report Type: 
  Country: None (occurrence: None)
  Receive Date: 20100923
  Receipt Date: 20100915
  Transmission Date: 20110219
  Serious: Yes (Death, Other)
  Sender: FDA-Public Use
  Company Number: DE-CUBIST-2010S1000706

PATIENT
  Age: 81 Year
  Sex: Male
  Weight: 60 kg

DRUGS (5)
  1. CUBICIN [Suspect]
     Indication: SEPSIS
     Route: 042
     Dates: start: 20100622
  2. CUBICIN [Suspect]
     Route: 042
     Dates: start: 20100622
  3. AMINO ACIDS [Concomitant]
     Indication: PRODUCT USED FOR UNKNOWN INDICATION
  4. POTASSIUM CHLORIDE [Concomitant]
     Indication: PRODUCT USED FOR UNKNOWN INDICATION
  5. INSULIN [Concomitant]
     Indication: PRODUCT USED FOR UNKNOWN INDICATION

REACTIONS (3)
  - HYPERTENSIVE CRISIS [None]
  - MULTI-ORGAN FAILURE [None]
  - SEPTIC SHOCK [None]
